FAERS Safety Report 26158408 (Version 1)
Quarter: 2025Q4

REPORT INFORMATION
  Report Type: Spontaneous
  Country: US (occurrence: US)
  Receive Date: 20251215
  Receipt Date: 20251215
  Transmission Date: 20260118
  Serious: Yes (Life-Threatening, Hospitalization)
  Sender: PFIZER
  Company Number: US-PFIZER INC-PV202500144814

PATIENT
  Age: 15 Year
  Sex: Male

DRUGS (3)
  1. SODIUM BICARBONATE [Suspect]
     Active Substance: SODIUM BICARBONATE
     Indication: Arrhythmia
     Dosage: 1.85 MEQ/KG (BOLUS)
  2. SODIUM BICARBONATE [Suspect]
     Active Substance: SODIUM BICARBONATE
     Dosage: CONTINUOUS INFUSION
  3. SODIUM BICARBONATE [Suspect]
     Active Substance: SODIUM BICARBONATE
     Dosage: SECOND 1.85 MEQ/KG SODIUM BICARBONATE BOLUS

REACTIONS (1)
  - Drug ineffective [Unknown]
